FAERS Safety Report 18553567 (Version 2)
Quarter: 2020Q4

REPORT INFORMATION
  Report Type: Report from Study
  Country: US (occurrence: US)
  Receive Date: 20201127
  Receipt Date: 20201221
  Transmission Date: 20210114
  Serious: Yes (Hospitalization)
  Sender: FDA-Public Use
  Company Number: US-ROCHE-2671073

PATIENT
  Age: 71 Year
  Sex: Female
  Weight: 101.7 kg

DRUGS (5)
  1. LIDOCAINE;PRILOCAINE [Concomitant]
     Dosage: PRN
     Route: 061
     Dates: start: 20100910
  2. PREMARIN [Concomitant]
     Active Substance: ESTROGENS, CONJUGATED
     Dosage: 1 PILL EVERY 3RD DAY
     Route: 048
     Dates: start: 20170601
  3. LUTEIN ZEAXANTHIN [Concomitant]
     Indication: PROPHYLAXIS
     Dosage: 25-5 MG
     Route: 048
     Dates: start: 20150301
  4. FISH OIL OMEGA 3 [Concomitant]
     Active Substance: FISH OIL
     Indication: PROPHYLAXIS
     Route: 048
     Dates: start: 20170601
  5. ATEZOLIZUMAB. [Suspect]
     Active Substance: ATEZOLIZUMAB
     Indication: NON-SMALL CELL LUNG CANCER
     Dosage: LAST ADMINISTERED DOSE: 12-AUG-2020
     Route: 041
     Dates: start: 20200318

REACTIONS (2)
  - Hand fracture [Recovered/Resolved]
  - Atrial fibrillation [Recovered/Resolved]

NARRATIVE: CASE EVENT DATE: 20200827
